FAERS Safety Report 22270265 (Version 2)
Quarter: 2025Q4

REPORT INFORMATION
  Report Type: Report from Study
  Country: US (occurrence: US)
  Receive Date: 20230501
  Receipt Date: 20251215
  Transmission Date: 20260118
  Serious: Yes (Other)
  Sender: TAKEDA
  Company Number: US-TAKEDA-2023TUS041793

PATIENT
  Age: 66 Year
  Sex: Female

DRUGS (3)
  1. VEDOLIZUMAB [Suspect]
     Active Substance: VEDOLIZUMAB
     Indication: Crohn^s disease
     Dosage: UNK
  2. VEDOLIZUMAB [Suspect]
     Active Substance: VEDOLIZUMAB
     Indication: Colitis ulcerative
     Dosage: UNK
  3. VEDOLIZUMAB [Suspect]
     Active Substance: VEDOLIZUMAB
     Dosage: 300 MILLIGRAM

REACTIONS (12)
  - Crohn^s disease [Unknown]
  - Diarrhoea [Unknown]
  - Gastrointestinal polyp [Unknown]
  - White blood cell count decreased [Unknown]
  - Red blood cell sedimentation rate decreased [Unknown]
  - Feeling abnormal [Unknown]
  - Drug ineffective [Unknown]
  - Eye disorder [Unknown]
  - Arthritis [Unknown]
  - Osteoporosis [Unknown]
  - Dyspepsia [Unknown]
  - Back pain [Unknown]
